FAERS Safety Report 7624821-7 (Version None)
Quarter: 2011Q3

REPORT INFORMATION
  Report Type: 
  Country: None (occurrence: None)
  Receive Date: 20110720
  Receipt Date: 20100831
  Transmission Date: 20111222
  Serious: Yes (Death)
  Sender: FDA-Public Use
  Company Number: US-BAYER-201032519NA

PATIENT
  Sex: Female
  Weight: 46.259 kg

DRUGS (21)
  1. CELEXA [Concomitant]
  2. NEPHROVITE [VIT C,VIT H,B5,B12,B9,B3,B6,B2,B1 HCL] [Concomitant]
  3. PROCRIT [Concomitant]
  4. GADOLINIUM IN UNSPECIFIED DRUG [Suspect]
     Dosage: 10 ML, ONCE
     Dates: start: 20010927, end: 20010927
  5. LISINOPRIL [Concomitant]
  6. CLONIDINE [Concomitant]
  7. RENAGEL [Concomitant]
  8. EPOGEN [Concomitant]
  9. GADOLINIUM IN UNSPECIFIED DRUG [Suspect]
     Dosage: 15 ML, ONCE
     Dates: start: 20010918, end: 20010918
  10. OMNISCAN [Suspect]
     Indication: PRODUCT USED FOR UNKNOWN INDICATION
     Dosage: 12 ML, ONCE
     Dates: start: 20010910, end: 20010910
  11. OMNISCAN [Suspect]
  12. OMNISCAN [Suspect]
  13. MECLIZINE [Concomitant]
  14. TUMS [CALCIUM CARBONATE] [Concomitant]
  15. OMNISCAN [Suspect]
  16. GADOLINIUM IN UNSPECIFIED DRUG [Suspect]
     Dosage: UNK
     Dates: start: 20020227, end: 20020227
  17. MAGNEVIST [Suspect]
     Dosage: 12 ML, ONCE
     Dates: start: 20010907, end: 20010907
  18. OMNISCAN [Suspect]
  19. ASPIRIN [Concomitant]
  20. PHOSLO [Concomitant]
  21. SENSIPAR [Concomitant]

REACTIONS (6)
  - MUSCLE CONTRACTURE [None]
  - PAIN [None]
  - GENERAL PHYSICAL HEALTH DETERIORATION [None]
  - SKIN INDURATION [None]
  - SKIN HYPERPIGMENTATION [None]
  - NEPHROGENIC SYSTEMIC FIBROSIS [None]
